FAERS Safety Report 6893370-6 (Version None)
Quarter: 2010Q3

REPORT INFORMATION
  Report Type: 
  Country: None (occurrence: None)
  Receive Date: 20100731
  Receipt Date: 20090824
  Transmission Date: 20110219
  Serious: No
  Sender: FDA-Public Use
  Company Number: US-PFIZER INC-2009261105

PATIENT
  Sex: Female
  Weight: 49.4 kg

DRUGS (6)
  1. LIPITOR [Suspect]
     Dosage: 20 MG, ALTERNATE DAY
     Route: 048
  2. ATENOLOL [Interacting]
     Indication: HYPERTENSION
     Dosage: 25 MG, 1X/DAY
     Route: 048
  3. ACETYLSALICYLIC ACID [Concomitant]
     Indication: CARDIAC DISORDER
     Dosage: 325 MG, 1X/DAY
     Route: 048
  4. DIGOXIN [Concomitant]
     Indication: CARDIAC DISORDER
     Dosage: 250 UG, 1X/DAY
  5. CALCITONIN [Concomitant]
     Indication: OSTEOPOROSIS
     Route: 045
  6. ALENDRONATE SODIUM [Concomitant]
     Indication: OSTEOPOROSIS
     Dosage: 70 MG, WEEKLY

REACTIONS (3)
  - DRUG INTERACTION [None]
  - MUSCULOSKELETAL STIFFNESS [None]
  - MYALGIA [None]
